FAERS Safety Report 7298885-7 (Version None)
Quarter: 2011Q1

REPORT INFORMATION
  Report Type: 
  Country: None (occurrence: None)
  Receive Date: 20110217
  Receipt Date: 20110204
  Transmission Date: 20110831
  Serious: Yes (Other)
  Sender: FDA-Public Use
  Company Number: PHHY2011FR08729

PATIENT

DRUGS (1)
  1. GLEEVEC [Suspect]
     Dosage: DAILY

REACTIONS (1)
  - MACULAR DEGENERATION [None]
